FAERS Safety Report 11450162 (Version 1)
Quarter: 2015Q3

REPORT INFORMATION
  Report Type: Spontaneous
  Country: US (occurrence: US)
  Receive Date: 20150903
  Receipt Date: 20150903
  Transmission Date: 20151125
  Serious: No
  Sender: FDA-Public Use
  Company Number: US-ROCHE-1056183

PATIENT
  Sex: Female

DRUGS (6)
  1. PEGASYS [Suspect]
     Active Substance: PEGINTERFERON ALFA-2A
     Indication: HEPATITIS C
     Route: 058
     Dates: start: 200910, end: 201004
  2. RIBASPHERE RIBAPAK [Suspect]
     Active Substance: RIBAVIRIN
     Route: 048
  3. TELAPREVIR [Suspect]
     Active Substance: TELAPREVIR
     Indication: HEPATITIS C
     Route: 065
     Dates: start: 20111111
  4. RIBASPHERE RIBAPAK [Suspect]
     Active Substance: RIBAVIRIN
     Indication: HEPATITIS C
     Route: 048
     Dates: start: 200910, end: 201004
  5. PEGASYS [Suspect]
     Active Substance: PEGINTERFERON ALFA-2A
     Route: 058
     Dates: start: 20111111
  6. RIBASPHERE RIBAPAK [Suspect]
     Active Substance: RIBAVIRIN
     Route: 048
     Dates: start: 20111111

REACTIONS (11)
  - Diarrhoea [Unknown]
  - Rectal haemorrhage [Unknown]
  - Depression [Not Recovered/Not Resolved]
  - Anorectal discomfort [Unknown]
  - Anaemia [Unknown]
  - Nausea [Unknown]
  - Alopecia [Unknown]
  - White blood cell count decreased [Unknown]
  - Rash generalised [Unknown]
  - Haemorrhoids [Unknown]
  - Proctalgia [Unknown]
